FAERS Safety Report 20330993 (Version 1)
Quarter: 2022Q1

REPORT INFORMATION
  Report Type: Spontaneous
  Country: DE (occurrence: None)
  Receive Date: 20220113
  Receipt Date: 20220113
  Transmission Date: 20220423
  Serious: Yes (Hospitalization)
  Sender: FDA-Public Use
  Company Number: DE-ROCHE-2999254

PATIENT
  Age: 73 Year
  Sex: Female

DRUGS (1)
  1. ROZLYTREK [Suspect]
     Active Substance: ENTRECTINIB
     Indication: Lung neoplasm malignant
     Route: 065
     Dates: start: 2021

REACTIONS (6)
  - Somnolence [Not Recovered/Not Resolved]
  - Carbon dioxide increased [Unknown]
  - Oxygen saturation decreased [Recovered/Resolved]
  - Peripheral swelling [Unknown]
  - Confusional state [Recovered/Resolved]
  - Memory impairment [Recovered/Resolved]

NARRATIVE: CASE EVENT DATE: 20211201
